FAERS Safety Report 4712870-8 (Version None)
Quarter: 2005Q3

REPORT INFORMATION
  Report Type: 
  Country: None (occurrence: None)
  Receive Date: 20050712
  Receipt Date: 20050712
  Transmission Date: 20060218
  Serious: Yes (Life-Threatening)
  Sender: FDA-Public Use
  Company Number: None

PATIENT
  Age: 63 Year
  Sex: Male
  Weight: 85.4 kg

DRUGS (3)
  1. TRASYLOL [Suspect]
     Indication: HEART TRANSPLANT
     Dosage: 1 ML  ONE TIME DOSE   INTRAVENOU
     Route: 042
     Dates: start: 20050626, end: 20050626
  2. SOLU-MEDROL [Concomitant]
  3. CEFUROXIME [Concomitant]

REACTIONS (1)
  - PROCEDURAL COMPLICATION [None]
